FAERS Safety Report 22964877 (Version 4)
Quarter: 2023Q4

REPORT INFORMATION
  Report Type: Spontaneous
  Country: US (occurrence: US)
  Receive Date: 20230921
  Receipt Date: 20231114
  Transmission Date: 20240110
  Serious: No
  Sender: FDA-Public Use
  Company Number: US-PFIZER INC-202300290898

PATIENT
  Age: 14 Year
  Sex: Female
  Weight: 44.91 kg

DRUGS (1)
  1. GENOTROPIN [Suspect]
     Active Substance: SOMATROPIN
     Indication: Growth disorder
     Dosage: 1.6 ML, 1X/DAY
     Dates: start: 20230813

REACTIONS (5)
  - Drug dose omission by device [Unknown]
  - Device use error [Unknown]
  - Device issue [Unknown]
  - Device information output issue [Unknown]
  - Off label use [Unknown]

NARRATIVE: CASE EVENT DATE: 20230813
